FAERS Safety Report 9218085 (Version 3)
Quarter: 2013Q2

REPORT INFORMATION
  Report Type: Spontaneous
  Country: IE (occurrence: IE)
  Receive Date: 20130408
  Receipt Date: 20130514
  Transmission Date: 20140414
  Serious: Yes (Hospitalization)
  Sender: FDA-Public Use
  Company Number: IE-GLAXOSMITHKLINE-B0866694A

PATIENT
  Age: 82 Year
  Sex: Male
  Weight: 68.4 kg

DRUGS (15)
  1. REVOLADE [Suspect]
     Indication: IDIOPATHIC THROMBOCYTOPENIC PURPURA
     Dosage: 75MG PER DAY
     Route: 048
     Dates: start: 20110511
  2. PREDNISOLONE [Concomitant]
     Dosage: 15MG PER DAY
  3. OXYCONTIN [Concomitant]
     Dosage: 40MG TWICE PER DAY
  4. VALACICLOVIR [Concomitant]
  5. TRANEXAMIC ACID [Concomitant]
     Dosage: 500MG THREE TIMES PER DAY
  6. ASPIRIN [Concomitant]
     Dosage: 75MG PER DAY
  7. RAMIPRIL [Concomitant]
     Dosage: 2.5MG PER DAY
  8. ATORVASTATIN [Concomitant]
     Dosage: 20MG PER DAY
  9. DIGOXIN [Concomitant]
     Dosage: .625MG PER DAY
  10. FRUSEMIDE [Concomitant]
     Dosage: 40MG PER DAY
  11. ESOMEPRAZOLE [Concomitant]
     Dosage: 40MG PER DAY
  12. TAMSULOSIN [Concomitant]
     Dosage: 40MG PER DAY
  13. STEROIDS [Concomitant]
     Indication: IDIOPATHIC THROMBOCYTOPENIC PURPURA
  14. IVIG [Concomitant]
     Indication: IDIOPATHIC THROMBOCYTOPENIC PURPURA
  15. OXYNORM [Concomitant]
     Dosage: 5MG AS REQUIRED
     Route: 065

REACTIONS (3)
  - Angina pectoris [Recovered/Resolved]
  - Platelet count increased [Unknown]
  - Pain [Unknown]
